FAERS Safety Report 8900778 (Version 1)
Quarter: 2012Q4

REPORT INFORMATION
  Report Type: 
  Country: CH (occurrence: CH)
  Receive Date: 20121109
  Receipt Date: 20121109
  Transmission Date: 20130627
  Serious: Yes (Other)
  Sender: FDA-Public Use
  Company Number: CH-ROCHE-794470

PATIENT
  Age: 67 Year
  Sex: Male

DRUGS (7)
  1. ROCEPHIN [Suspect]
     Indication: PRODUCT USED FOR UNKNOWN INDICATION
     Route: 041
     Dates: start: 20110712, end: 20110714
  2. CLARITHROMYCIN [Interacting]
     Indication: PRODUCT USED FOR UNKNOWN INDICATION
     Route: 048
     Dates: start: 20110712, end: 20110714
  3. NEXIUM [Interacting]
     Indication: ABDOMINAL PAIN UPPER
     Route: 048
     Dates: start: 20110712, end: 20110715
  4. BUPRENORPHINE [Concomitant]
     Route: 060
  5. FELODIPINE [Concomitant]
     Route: 048
  6. CLOPIDOGREL [Concomitant]
     Route: 048
  7. METOPROLOL [Concomitant]
     Route: 048

REACTIONS (2)
  - Cholestatic liver injury [Recovering/Resolving]
  - Pancreatitis [Recovered/Resolved]
